FAERS Safety Report 4912596-1 (Version None)
Quarter: 2006Q1

REPORT INFORMATION
  Report Type: 
  Country: None (occurrence: None)
  Receive Date: 20060215
  Receipt Date: 20060207
  Transmission Date: 20060701
  Serious: Yes (Hospitalization)
  Sender: FDA-Public Use
  Company Number: FR-GLAXOSMITHKLINE-B0409735A

PATIENT
  Age: 41 Year
  Sex: Male
  Weight: 59 kg

DRUGS (5)
  1. RETROVIR [Suspect]
     Indication: HIV INFECTION
     Dosage: 100MG PER DAY
     Route: 048
     Dates: start: 20050831
  2. EPIVIR [Suspect]
     Indication: HIV INFECTION
     Dosage: 300MG PER DAY
     Route: 048
     Dates: start: 20050831
  3. VIDEX [Suspect]
     Indication: HIV INFECTION
     Dosage: 400MG PER DAY
     Route: 048
     Dates: start: 20050831
  4. REYATAZ [Suspect]
     Indication: HIV INFECTION
     Dosage: 300MG PER DAY
     Route: 048
     Dates: start: 20050831
  5. PENTACARINAT [Concomitant]
     Route: 055

REACTIONS (13)
  - ABDOMINAL PAIN [None]
  - ANOREXIA [None]
  - ASTHENIA [None]
  - BLOOD CREATINE PHOSPHOKINASE INCREASED [None]
  - BLOOD LACTATE DEHYDROGENASE INCREASED [None]
  - COUGH [None]
  - HYPERBILIRUBINAEMIA [None]
  - MITOCHONDRIAL CYTOPATHY [None]
  - MYALGIA [None]
  - NEUROPATHY PERIPHERAL [None]
  - ORAL CANDIDIASIS [None]
  - PARAESTHESIA [None]
  - VISION BLURRED [None]
